FAERS Safety Report 10005153 (Version 1)
Quarter: 2014Q1

REPORT INFORMATION
  Report Type: Report from Study
  Country: CA (occurrence: CA)
  Receive Date: 20140312
  Receipt Date: 20140312
  Transmission Date: 20141002
  Serious: Yes (Other)
  Sender: FDA-Public Use
  Company Number: CA-BRISTOL-MYERS SQUIBB COMPANY-20355293

PATIENT
  Age: 16 Year
  Sex: Female

DRUGS (6)
  1. ORENCIA [Suspect]
     Indication: RHEUMATOID ARTHRITIS
     Dosage: 1 DF= 500 UNITS NOS
     Dates: start: 20130418
  2. CYPROHEPTADINE [Concomitant]
  3. VITAMIN B2 [Concomitant]
  4. VENTOLIN [Concomitant]
  5. BENADRYL [Concomitant]
  6. MULTIVITAMINS [Concomitant]

REACTIONS (2)
  - Umbilical hernia [Unknown]
  - Keloid scar [Unknown]
